FAERS Safety Report 8804086 (Version 1)
Quarter: 2012Q4

REPORT INFORMATION
  Report Type: 
  Country: FR (occurrence: FR)
  Receive Date: 20120924
  Receipt Date: 20120924
  Transmission Date: 20130627
  Serious: Yes (Hospitalization)
  Sender: FDA-Public Use
  Company Number: FR-GLAXOSMITHKLINE-B0829516A

PATIENT
  Age: 51 None
  Sex: Female

DRUGS (11)
  1. LAMICTAL [Suspect]
     Indication: MANIA
     Dosage: 25MG See dosage text
     Route: 048
     Dates: start: 20120702, end: 20120709
  2. QUETIAPINE [Concomitant]
     Dosage: 400MG Twice per day
     Route: 048
     Dates: start: 201201
  3. LEVOTHYROX [Concomitant]
     Dosage: 50MCG Twice per day
     Route: 048
  4. KARDEGIC [Concomitant]
     Route: 048
  5. DITROPAN [Concomitant]
     Dosage: 5MG Twice per day
     Route: 048
  6. SULFARLEM [Concomitant]
     Dosage: 25MG Three times per day
     Route: 048
  7. BRICANYL [Concomitant]
     Route: 055
  8. ATROVENT [Concomitant]
     Route: 055
  9. NOZINAN [Concomitant]
     Dosage: 150MG Per day
     Route: 065
     Dates: start: 20120613, end: 20120629
  10. TEGRETOL [Concomitant]
     Dosage: 2UNIT Per day
     Route: 065
     Dates: start: 20120613, end: 20120629
  11. CYMBALTA [Concomitant]
     Dates: start: 20120623, end: 20120629

REACTIONS (4)
  - Aphasia [Recovered/Resolved]
  - Echolalia [Recovered/Resolved]
  - Chromaturia [Recovered/Resolved]
  - Urine odour abnormal [Recovered/Resolved]
